FAERS Safety Report 24317058 (Version 1)
Quarter: 2024Q3

REPORT INFORMATION
  Report Type: Report from Study
  Country: TW (occurrence: TW)
  Receive Date: 20240913
  Receipt Date: 20240913
  Transmission Date: 20241017
  Serious: Yes (Other)
  Sender: ROCHE
  Company Number: TW-002147023-NVSC2024TW178350

PATIENT
  Age: 39 Year
  Sex: Male

DRUGS (1)
  1. LUCENTIS [Suspect]
     Active Substance: RANIBIZUMAB
     Indication: Polypoidal choroidal vasculopathy
     Route: 047
     Dates: start: 20220920

REACTIONS (5)
  - Subretinal fluid [Unknown]
  - Retinal haemorrhage [Unknown]
  - Visual impairment [Unknown]
  - Optical coherence tomography abnormal [Unknown]
  - Fluorescence angiogram abnormal [Unknown]

NARRATIVE: CASE EVENT DATE: 20221004
